FAERS Safety Report 4754760-0 (Version None)
Quarter: 2005Q3

REPORT INFORMATION
  Report Type: 
  Country: None (occurrence: None)
  Receive Date: 20050826
  Receipt Date: 20050826
  Transmission Date: 20060218
  Serious: Yes (Other)
  Sender: FDA-Public Use
  Company Number: None

PATIENT
  Age: 21 Year
  Sex: Male
  Weight: 104.3273 kg

DRUGS (1)
  1. SEPTRA DS [Suspect]
     Indication: NAIL INFECTION
     Dosage: DS ORAL BID
     Route: 048
     Dates: start: 20050821

REACTIONS (2)
  - PRURITUS [None]
  - RASH [None]
